FAERS Safety Report 13662611 (Version 4)
Quarter: 2017Q3

REPORT INFORMATION
  Report Type: Spontaneous
  Country: US (occurrence: US)
  Receive Date: 20170618
  Receipt Date: 20170708
  Transmission Date: 20171127
  Serious: No
  Sender: FDA-Public Use
  Company Number: US-TEVA-777198ACC

PATIENT
  Sex: Female

DRUGS (15)
  1. BACLOFEN. [Concomitant]
     Active Substance: BACLOFEN
  2. TRAZODONE [Concomitant]
     Active Substance: TRAZODONE HYDROCHLORIDE
  3. RIZATRIPTAN. [Concomitant]
     Active Substance: RIZATRIPTAN
  4. MELOXICAM. [Concomitant]
     Active Substance: MELOXICAM
  5. OMEPRAZOLE. [Concomitant]
     Active Substance: OMEPRAZOLE
  6. DICLOFENAC [Concomitant]
     Active Substance: DICLOFENAC
  7. METHYLPREDNISOLONE. [Concomitant]
     Active Substance: METHYLPREDNISOLONE
  8. APAP/CODEINE [Concomitant]
     Active Substance: ACETAMINOPHEN\CODEINE PHOSPHATE
  9. GABAPENTIN. [Concomitant]
     Active Substance: GABAPENTIN
  10. VITAMIN D3 [Concomitant]
     Active Substance: CHOLECALCIFEROL
  11. ORPHENADRINE [Concomitant]
     Active Substance: ORPHENADRINE
  12. CLINDAMYCIN. [Concomitant]
     Active Substance: CLINDAMYCIN
  13. PREDNISOLONE. [Concomitant]
     Active Substance: PREDNISOLONE
  14. COPAXONE [Suspect]
     Active Substance: GLATIRAMER ACETATE
     Indication: MULTIPLE SCLEROSIS
     Dosage: PRE FILLED SYRINGE
     Dates: start: 20170516
  15. TOPIRAMATE. [Concomitant]
     Active Substance: TOPIRAMATE

REACTIONS (4)
  - Injection site pain [Not Recovered/Not Resolved]
  - Incision site pain [Not Recovered/Not Resolved]
  - Myalgia [Not Recovered/Not Resolved]
  - Rash [Not Recovered/Not Resolved]
